FAERS Safety Report 9165966 (Version 1)
Quarter: 2013Q1

REPORT INFORMATION
  Report Type: Spontaneous
  Country: US (occurrence: None)
  Receive Date: 20130301
  Receipt Date: 20130301
  Transmission Date: 20140127
  Serious: Yes (Other)
  Sender: FDA-Public Use
  Company Number: 20130063

PATIENT
  Age: 40 Year
  Sex: Female

DRUGS (1)
  1. DEXAMETHASONE SODIUM PHOSPHATE INJECTION, USP (4901-25) 4 MG/ML [Suspect]
     Indication: SECONDARY ADRENOCORTICAL INSUFFICIENCY

REACTIONS (8)
  - Diabetes insipidus [None]
  - Asthenia [None]
  - Vomiting [None]
  - Diarrhoea [None]
  - Somnolence [None]
  - Hypotension [None]
  - Tachycardia [None]
  - Hyponatraemia [None]
